FAERS Safety Report 23335662 (Version 1)
Quarter: 2023Q4

REPORT INFORMATION
  Report Type: Spontaneous
  Country: IL (occurrence: IL)
  Receive Date: 20231225
  Receipt Date: 20231225
  Transmission Date: 20240109
  Serious: Yes (Other)
  Sender: FDA-Public Use
  Company Number: IL-MLMSERVICE-2023120747138851

PATIENT
  Age: 15 Year
  Sex: Female

DRUGS (1)
  1. HYDROXYCHLOROQUINE [Suspect]
     Active Substance: HYDROXYCHLOROQUINE
     Indication: Systemic lupus erythematosus

REACTIONS (7)
  - Neuropathy peripheral [Recovering/Resolving]
  - Papilloedema [Recovering/Resolving]
  - Toxicity to various agents [Recovering/Resolving]
  - CSF protein increased [Unknown]
  - Radiculopathy [Unknown]
  - Intracranial pressure increased [Unknown]
  - Myopathy [Recovering/Resolving]
